FAERS Safety Report 6313275-9 (Version None)
Quarter: 2009Q3

REPORT INFORMATION
  Report Type: 
  Country: None (occurrence: None)
  Receive Date: 20090818
  Receipt Date: 20090810
  Transmission Date: 20100115
  Serious: Yes (Hospitalization, Congenital Anomaly)
  Sender: FDA-Public Use
  Company Number: A0748199A

PATIENT
  Sex: Female

DRUGS (8)
  1. PAXIL [Suspect]
     Indication: ANXIETY
  2. ALDOMET [Concomitant]
     Indication: HYPERTENSION
     Dosage: 250MG TWICE PER DAY
  3. PERCOCET [Concomitant]
  4. INDERAL [Concomitant]
  5. MACROBID [Concomitant]
  6. VERAPAMIL ER [Concomitant]
     Dosage: 120MG PER DAY
  7. AMOXICILLIN [Concomitant]
  8. Z PAK [Concomitant]

REACTIONS (6)
  - ASTHMA [None]
  - BRONCHITIS [None]
  - CARDIAC MURMUR [None]
  - DRUG EXPOSURE DURING PREGNANCY [None]
  - MULTIPLE CONGENITAL ABNORMALITIES [None]
  - SPEECH DISORDER DEVELOPMENTAL [None]
